FAERS Safety Report 12485432 (Version 1)
Quarter: 2016Q2

REPORT INFORMATION
  Report Type: Spontaneous
  Country: US (occurrence: US)
  Receive Date: 20160621
  Receipt Date: 20160621
  Transmission Date: 20160815
  Serious: No
  Sender: FDA-Public Use
  Company Number: US-SA-2015SA092866

PATIENT
  Age: 27 Year
  Sex: Female
  Weight: 59.85 kg

DRUGS (3)
  1. CEREZYME [Suspect]
     Active Substance: IMIGLUCERASE
     Indication: GAUCHER^S DISEASE
     Dosage: DOSE:60 UNIT(S)/KILOGRAM BODYWEIGHT
     Route: 042
  2. EPIPEN [Concomitant]
     Active Substance: EPINEPHRINE
     Indication: ANAPHYLACTIC REACTION
     Route: 030
     Dates: start: 20150806
  3. LIDOCAINE/PRILOCAINE [Concomitant]
     Dosage: 2.5% AS DIRECTED
     Route: 061
     Dates: start: 20150806

REACTIONS (1)
  - Exposure during pregnancy [Unknown]
